FAERS Safety Report 23737390 (Version 1)
Quarter: 2024Q2

REPORT INFORMATION
  Report Type: Spontaneous
  Country: SK (occurrence: SK)
  Receive Date: 20240412
  Receipt Date: 20240412
  Transmission Date: 20240716
  Serious: Yes (Hospitalization)
  Sender: FDA-Public Use
  Company Number: SK-TEVA-VS-3144404

PATIENT
  Sex: Female

DRUGS (2)
  1. QUETIAPINE [Suspect]
     Active Substance: QUETIAPINE
     Indication: Schizophrenia
     Dosage: TREATED BETWEEN 2016 TO 2018UNK
     Route: 065
     Dates: start: 2016, end: 2018
  2. RISPERIDONE [Suspect]
     Active Substance: RISPERIDONE
     Indication: Product used for unknown indication
     Dosage: TREATED FOR ONE YEARUNK
     Route: 065

REACTIONS (8)
  - Psychiatric symptom [Recovering/Resolving]
  - Condition aggravated [Recovering/Resolving]
  - Drug tolerance decreased [Unknown]
  - Impaired work ability [Recovering/Resolving]
  - Sedation [Unknown]
  - Palpitations [Recovering/Resolving]
  - Tachycardia [Recovering/Resolving]
  - Akathisia [Recovering/Resolving]
